FAERS Safety Report 6470341-5 (Version None)
Quarter: 2009Q4

REPORT INFORMATION
  Report Type: 
  Country: None (occurrence: None)
  Receive Date: 20091203
  Receipt Date: 20091123
  Transmission Date: 20100525
  Serious: Yes (Life-Threatening)
  Sender: FDA-Public Use
  Company Number: US-SANOFI-AVENTIS-2009SA005691

PATIENT
  Age: 37 Year
  Sex: Female

DRUGS (1)
  1. TAXOTERE [Suspect]
     Route: 051

REACTIONS (1)
  - ADVERSE DRUG REACTION [None]
